FAERS Safety Report 21667488 (Version 1)
Quarter: 2022Q4

REPORT INFORMATION
  Report Type: Report from Study
  Country: CA (occurrence: CA)
  Receive Date: 20221201
  Receipt Date: 20221201
  Transmission Date: 20230112
  Serious: Yes (Other)
  Sender: FDA-Public Use
  Company Number: CA-002147023-NVSC2020CA252236

PATIENT
  Age: 48 Year
  Sex: Female

DRUGS (1)
  1. MAYZENT [Suspect]
     Active Substance: SIPONIMOD
     Indication: Secondary progressive multiple sclerosis
     Dosage: UNK
     Route: 048
     Dates: start: 20200911

REACTIONS (3)
  - Paraparesis [Unknown]
  - Neurogenic bladder [Unknown]
  - Fatigue [Unknown]

NARRATIVE: CASE EVENT DATE: 20200913
